FAERS Safety Report 8992154 (Version 4)
Quarter: 2013Q3

REPORT INFORMATION
  Report Type: Report from Study
  Country: CA (occurrence: CA)
  Receive Date: 20121231
  Receipt Date: 20130702
  Transmission Date: 20140515
  Serious: Yes (Other)
  Sender: FDA-Public Use
  Company Number: CA-ROCHE-1173146

PATIENT
  Age: 34 Year
  Sex: Male

DRUGS (5)
  1. OMALIZUMAB [Suspect]
     Indication: ASTHMA
     Dosage: 300 MG, 2/MONTH, FORM : VIAL
     Route: 058
     Dates: start: 20061113
  2. OMALIZUMAB [Suspect]
     Dosage: 300 MG, 2/MONTH, FORM : VIAL
     Route: 058
     Dates: start: 20091108
  3. OMALIZUMAB [Suspect]
     Dosage: 300 MG, 2/MONTH, FORM : VIAL
     Route: 058
     Dates: start: 20091105
  4. OMALIZUMAB [Suspect]
     Route: 058
     Dates: start: 20061214
  5. OMALIZUMAB [Suspect]
     Route: 058
     Dates: start: 20080915

REACTIONS (21)
  - Bronchopneumonia [Recovered/Resolved]
  - Lower respiratory tract infection [Not Recovered/Not Resolved]
  - Bronchitis [Unknown]
  - Asthma [Unknown]
  - Infection [Unknown]
  - Fatigue [Unknown]
  - Ear infection [Unknown]
  - Sinusitis [Unknown]
  - Pain in extremity [Unknown]
  - Blood pressure increased [Unknown]
  - Nasopharyngitis [Recovered/Resolved]
  - Stress [Unknown]
  - Heart rate increased [Unknown]
  - Respiratory rate increased [Unknown]
  - Dizziness [Unknown]
  - Urticaria [Unknown]
  - Fatigue [Unknown]
  - Pulmonary congestion [Unknown]
  - Nasal congestion [Unknown]
  - Ear pain [Unknown]
  - Influenza [Recovering/Resolving]
